FAERS Safety Report 8620986-9 (Version None)
Quarter: 2012Q3

REPORT INFORMATION
  Report Type: 
  Country: None (occurrence: None)
  Receive Date: 20120824
  Receipt Date: 20120814
  Transmission Date: 20120928
  Serious: Yes (Hospitalization)
  Sender: FDA-Public Use
  Company Number: US-ELI_LILLY_AND_COMPANY-US201206000137

PATIENT
  Sex: Female

DRUGS (10)
  1. AMLODIPINE [Concomitant]
     Dosage: 10 MG, QD
  2. WELLBUTRIN [Concomitant]
     Dosage: UNK
  3. FORTEO [Suspect]
     Dosage: 20 UG, UNK
     Route: 058
     Dates: start: 20110628, end: 20120511
  4. ASACOL [Concomitant]
     Dosage: 400 MG, BID
  5. CITRICAL                           /00751501/ [Concomitant]
     Dosage: UNK, QID
  6. NAMENDA [Concomitant]
     Dosage: 10 MG, BID
  7. FIBERCON [Concomitant]
     Dosage: 625 MG, BID
  8. JANUVIA [Concomitant]
     Dosage: 100 MG, QD
  9. CLONIDINE [Concomitant]
     Dosage: 0.1 MG, BID
  10. POTASSIUM [Concomitant]
     Dosage: 20 MEQ, QD

REACTIONS (1)
  - APPENDICITIS [None]
